FAERS Safety Report 9096721 (Version 1)
Quarter: 2013Q1

REPORT INFORMATION
  Report Type: Spontaneous
  Country: IN (occurrence: None)
  Receive Date: 20130124
  Receipt Date: 20130124
  Transmission Date: 20140127
  Serious: Yes (Other)
  Sender: FDA-Public Use
  Company Number: AUR-APL-2013-00326

PATIENT
  Age: 46 Year
  Sex: Female

DRUGS (5)
  1. ESCITALOPRAM (ESCITALOPRAM) [Suspect]
  2. ESCITALOPRAM (ESCITALOPRAM) [Suspect]
  3. GLIBENCLAMIDE [Suspect]
     Route: 048
  4. IMIPRAMINE [Suspect]
  5. IMIPRAMINE [Suspect]

REACTIONS (2)
  - Galactorrhoea [None]
  - Cerebral cyst [None]
